FAERS Safety Report 5694018-9 (Version None)
Quarter: 2008Q2

REPORT INFORMATION
  Report Type: 
  Country: None (occurrence: None)
  Receive Date: 20080401
  Receipt Date: 20080325
  Transmission Date: 20081010
  Serious: Yes (Other)
  Sender: FDA-Public Use
  Company Number: 2008007363

PATIENT
  Age: 78 Year
  Sex: Female
  Weight: 68.9467 kg

DRUGS (2)
  1. SUDAFED S.A. [Suspect]
     Indication: NASAL CONGESTION
     Dosage: 1 TABLET, ORAL
     Route: 048
     Dates: start: 20080318
  2. AMBIEN [Concomitant]

REACTIONS (2)
  - FALL [None]
  - TREMOR [None]
